FAERS Safety Report 4505783-8 (Version None)
Quarter: 2005Q1

REPORT INFORMATION
  Report Type: 
  Country: None (occurrence: None)
  Receive Date: 20041025
  Receipt Date: 20031212
  Transmission Date: 20050727
  Serious: Yes (Other)
  Sender: FDA-Public Use
  Company Number: US-JNJFOC-20031202962

PATIENT
  Age: 59 Year
  Sex: Female

DRUGS (2)
  1. REMICADE [Suspect]
     Indication: RHEUMATOID ARTHRITIS
     Dosage: 7.5 MG/KG, INTRAVENOUS
     Route: 042
  2. METHOTREXATE SODIUM [Concomitant]

REACTIONS (1)
  - PNEUMONITIS CRYPTOCOCCAL [None]
